FAERS Safety Report 14377149 (Version 1)
Quarter: 2018Q1

REPORT INFORMATION
  Report Type: Spontaneous
  Country: CA (occurrence: CA)
  Receive Date: 20180111
  Receipt Date: 20180111
  Transmission Date: 20180509
  Serious: Yes (Hospitalization)
  Sender: FDA-Public Use
  Company Number: CA-FRESENIUS KABI-FK201800341

PATIENT
  Sex: Female

DRUGS (1)
  1. LIDOCAINE/EPINEPHRINE (MANUFACTURER UNKNOWN) [Suspect]
     Active Substance: EPINEPHRINE BITARTRATE\LIDOCAINE HYDROCHLORIDE
     Indication: INFILTRATION ANAESTHESIA
     Route: 050

REACTIONS (2)
  - Cranial nerve palsies multiple [Recovered/Resolved]
  - Respiratory failure [Recovered/Resolved]
